FAERS Safety Report 8600328-5 (Version None)
Quarter: 2012Q3

REPORT INFORMATION
  Report Type: 
  Country: None (occurrence: None)
  Receive Date: 20120817
  Receipt Date: 20120807
  Transmission Date: 20120928
  Serious: Yes (Other)
  Sender: FDA-Public Use
  Company Number: DE-BRISTOL-MYERS SQUIBB COMPANY-16843385

PATIENT
  Age: 82 Year
  Sex: Male

DRUGS (3)
  1. NIFEHEXAL [Concomitant]
  2. ONGLYZA [Suspect]
     Dosage: TAKING 1 TABLET ONGLYZA 5 MG IN THE MORNING FOR 3 MONTHS NOW.
     Dates: start: 20120101
  3. VALSARTAN  AND HYDROCHLOROTHIAZIDE [Concomitant]
     Dosage: IN THE MORNING

REACTIONS (1)
  - CATARACT [None]
